FAERS Safety Report 17349066 (Version 1)
Quarter: 2020Q1

REPORT INFORMATION
  Report Type: Spontaneous
  Country: CZ (occurrence: CZ)
  Receive Date: 20200129
  Receipt Date: 20200129
  Transmission Date: 20200409
  Serious: No
  Sender: FDA-Public Use
  Company Number: CZ-EXELIXIS-CABO-19025012

PATIENT
  Age: 65 Year
  Sex: Male

DRUGS (9)
  1. CABOMETYX [Suspect]
     Active Substance: CABOZANTINIB S-MALATE
     Indication: METASTATIC RENAL CELL CARCINOMA
     Dosage: 60 MG, QD
     Dates: start: 201807
  2. CABOMETYX [Suspect]
     Active Substance: CABOZANTINIB S-MALATE
     Dosage: 40 MG, QD
     Dates: start: 201809
  3. CABOMETYX [Suspect]
     Active Substance: CABOZANTINIB S-MALATE
     Dosage: 20 MG, QD
     Dates: start: 201904
  4. FENTANYL. [Concomitant]
     Active Substance: FENTANYL
     Dosage: UNK
  5. ROSUVASTATIN. [Concomitant]
     Active Substance: ROSUVASTATIN
     Dosage: UNK
  6. DENOSUMAB [Concomitant]
     Active Substance: DENOSUMAB
     Dosage: UNK
  7. METFORMIN [Concomitant]
     Active Substance: METFORMIN HYDROCHLORIDE
     Dosage: UNK
  8. TELMISARTAN. [Concomitant]
     Active Substance: TELMISARTAN
     Dosage: UNK
  9. NIMESULIDE [Concomitant]
     Active Substance: NIMESULIDE
     Dosage: UNK

REACTIONS (14)
  - Hyperhidrosis [Recovering/Resolving]
  - Thrombocytopenia [Recovering/Resolving]
  - Oropharyngeal pain [Recovering/Resolving]
  - Fatigue [Recovering/Resolving]
  - Oral discomfort [Recovering/Resolving]
  - Weight decreased [Recovering/Resolving]
  - Dry skin [Recovering/Resolving]
  - Dysphonia [Recovering/Resolving]
  - Nausea [Recovering/Resolving]
  - Hypertension [Recovering/Resolving]
  - Dry mouth [Recovering/Resolving]
  - Anaemia [Recovering/Resolving]
  - Decreased appetite [Recovering/Resolving]
  - Asthenia [Recovering/Resolving]
